FAERS Safety Report 6661811-5 (Version None)
Quarter: 2010Q1

REPORT INFORMATION
  Report Type: 
  Country: None (occurrence: None)
  Receive Date: 20100331
  Receipt Date: 20090714
  Transmission Date: 20100710
  Serious: No
  Sender: FDA-Public Use
  Company Number: US-BRISTOL-MYERS SQUIBB COMPANY-14702195

PATIENT
  Sex: Female

DRUGS (2)
  1. ERBITUX [Suspect]
     Indication: TONSIL CANCER
  2. ERBITUX [Suspect]
     Indication: BREAST CANCER

REACTIONS (1)
  - ADVERSE EVENT [None]
